FAERS Safety Report 19061499 (Version 2)
Quarter: 2021Q2

REPORT INFORMATION
  Report Type: Spontaneous
  Country: PL (occurrence: PL)
  Receive Date: 20210325
  Receipt Date: 20210518
  Transmission Date: 20210717
  Serious: Yes (Death, Hospitalization, Other)
  Sender: FDA-Public Use
  Company Number: PL-009507513-2103POL005588

PATIENT
  Age: 8 Year
  Sex: Female
  Weight: 25 kg

DRUGS (5)
  1. COLISTIN [Concomitant]
     Active Substance: COLISTIN
     Indication: PSEUDOMONAS INFECTION
     Dosage: INTRAVENOUSLY 2X27 ML
     Route: 042
     Dates: start: 20210215
  2. PREVYMIS [Suspect]
     Active Substance: LETERMOVIR
     Dosage: 120 MG/DAILY
     Dates: start: 20210403, end: 20210412
  3. ZAVICEFTA [Concomitant]
     Active Substance: AVIBACTAM SODIUM\CEFTAZIDIME
     Indication: PSEUDOMONAS INFECTION
     Dosage: 150MG/KG/DAILY
     Route: 042
     Dates: start: 20210223
  4. GANCICLOVIR. [Suspect]
     Active Substance: GANCICLOVIR
     Indication: CYTOMEGALOVIRUS INFECTION REACTIVATION
     Dosage: UNK
     Route: 042
     Dates: start: 20210308
  5. PREVYMIS [Suspect]
     Active Substance: LETERMOVIR
     Indication: ALLOGENIC STEM CELL TRANSPLANTATION
     Dosage: 120 MG/DAILY
     Dates: start: 20210303, end: 20210310

REACTIONS (10)
  - Pseudomonas infection [Fatal]
  - Cytomegalovirus infection reactivation [Recovered/Resolved]
  - Drug ineffective [Unknown]
  - BK virus infection [Unknown]
  - Product use issue [Unknown]
  - Renal failure [Fatal]
  - Death [Fatal]
  - Acute lymphocytic leukaemia recurrent [Fatal]
  - Condition aggravated [Unknown]
  - Cardiac arrest [Fatal]

NARRATIVE: CASE EVENT DATE: 2021
